FAERS Safety Report 20859810 (Version 2)
Quarter: 2022Q3

REPORT INFORMATION
  Report Type: Spontaneous
  Country: US (occurrence: US)
  Receive Date: 20220523
  Receipt Date: 20220710
  Transmission Date: 20221026
  Serious: No
  Sender: FDA-Public Use
  Company Number: US-UCBSA-2022028660

PATIENT

DRUGS (1)
  1. NEUPRO [Suspect]
     Active Substance: ROTIGOTINE
     Indication: Product used for unknown indication
     Dosage: 2MG UNK
     Route: 062
     Dates: start: 20220426

REACTIONS (1)
  - Product adhesion issue [Unknown]
